FAERS Safety Report 19733954 (Version 2)
Quarter: 2022Q3

REPORT INFORMATION
  Report Type: Spontaneous
  Country: US (occurrence: US)
  Receive Date: 20210824
  Receipt Date: 20220824
  Transmission Date: 20221027
  Serious: No
  Sender: FDA-Public Use
  Company Number: US-AUROBINDO-AUR-APL-2020-050507

PATIENT
  Sex: Female

DRUGS (1)
  1. METHENAMINE HIPPURATE [Suspect]
     Active Substance: METHENAMINE HIPPURATE
     Indication: Product used for unknown indication
     Dosage: UNK
     Route: 065
     Dates: start: 202008

REACTIONS (4)
  - Dysgeusia [Unknown]
  - Product quality issue [Unknown]
  - Product physical issue [Unknown]
  - Drug ineffective [Unknown]
